FAERS Safety Report 25649123 (Version 1)
Quarter: 2025Q3

REPORT INFORMATION
  Report Type: Spontaneous
  Country: US (occurrence: None)
  Receive Date: 20250805
  Receipt Date: 20250805
  Transmission Date: 20251020
  Serious: Yes (Other)
  Sender: FDA-CTU
  Company Number: None

PATIENT
  Age: 32 Year
  Sex: Female
  Weight: 62.6 kg

DRUGS (9)
  1. CORTICOTROPIN [Suspect]
     Active Substance: CORTICOTROPIN
     Indication: Optic neuritis
     Dosage: FREQUENCY : TWICE A WEEK;?
     Route: 058
  2. MAGNESIUM CITRATE [Concomitant]
     Active Substance: MAGNESIUM CITRATE
  3. LACTOBACILLUS ACIDOPHILUS [Concomitant]
     Active Substance: LACTOBACILLUS ACIDOPHILUS
  4. Chloroform Solution [Concomitant]
  5. FISH OIL\OMEGA-3 FATTY ACIDS [Concomitant]
     Active Substance: FISH OIL\OMEGA-3 FATTY ACIDS
  6. CATAFLAM [Concomitant]
     Active Substance: DICLOFENAC POTASSIUM
  7. TYSABRI [Concomitant]
     Active Substance: NATALIZUMAB
  8. Vacunas/inmunoterapy [Concomitant]
  9. LORATADINE [Concomitant]
     Active Substance: LORATADINE

REACTIONS (6)
  - Ocular discomfort [None]
  - Multiple sclerosis [None]
  - Dizziness [None]
  - Constipation [None]
  - Weight increased [None]
  - Injection site discolouration [None]

NARRATIVE: CASE EVENT DATE: 20250805
